FAERS Safety Report 11471811 (Version 3)
Quarter: 2016Q3

REPORT INFORMATION
  Report Type: Spontaneous
  Country: US (occurrence: US)
  Receive Date: 20150908
  Receipt Date: 20160803
  Transmission Date: 20161109
  Serious: Yes (Other)
  Sender: FDA-Public Use
  Company Number: US-BAYER-2015-410273

PATIENT
  Age: 45 Year
  Sex: Female
  Weight: 99.77 kg

DRUGS (20)
  1. CYCLOBENZAPRINE [Concomitant]
     Active Substance: CYCLOBENZAPRINE
     Indication: PAIN
     Dosage: 5MG/ 1 AT BED TIME
  2. CYCLOBENZAPRINE [Concomitant]
     Active Substance: CYCLOBENZAPRINE
     Indication: NERVE INJURY
  3. SEROQUEL [Concomitant]
     Active Substance: QUETIAPINE FUMARATE
     Dosage: UNK
  4. CIPRO [Suspect]
     Active Substance: CIPROFLOXACIN HYDROCHLORIDE
     Indication: URINARY TRACT INFECTION
     Dosage: 250 MG, UNK
     Dates: start: 20120802, end: 20120809
  5. LEVAQUIN [Suspect]
     Active Substance: LEVOFLOXACIN
     Indication: INFECTION
     Dosage: 500 MG, UNK
     Dates: start: 20130714, end: 20130721
  6. CIPRO [Suspect]
     Active Substance: CIPROFLOXACIN HYDROCHLORIDE
     Indication: URINARY TRACT INFECTION
     Dosage: 500 MG, UNK
     Dates: start: 20101126
  7. LEVOFLOXACIN. [Suspect]
     Active Substance: LEVOFLOXACIN
     Dosage: UNK
     Dates: start: 2012
  8. LEVAQUIN [Suspect]
     Active Substance: LEVOFLOXACIN
     Indication: INFECTION
     Dosage: 500 UNK, UNK
     Dates: start: 20121031, end: 20121104
  9. AMLODIPINE [Concomitant]
     Active Substance: AMLODIPINE BESYLATE
     Indication: BLOOD PRESSURE MEASUREMENT
     Dosage: 5 MG, QD
     Dates: start: 2013, end: 2016
  10. CIPRO [Suspect]
     Active Substance: CIPROFLOXACIN HYDROCHLORIDE
     Indication: INFECTION
     Dosage: 500 MG, UNK
     Dates: start: 20111010, end: 20111017
  11. CIPRO [Suspect]
     Active Substance: CIPROFLOXACIN HYDROCHLORIDE
     Indication: URINARY TRACT INFECTION
     Dosage: 500 MG, UNK
     Dates: start: 20120302, end: 20120322
  12. ZONEGRAN [Concomitant]
     Active Substance: ZONISAMIDE
     Indication: PAIN
     Dosage: 100 MG, TID
  13. ABILIFY [Concomitant]
     Active Substance: ARIPIPRAZOLE
     Dosage: UNK
  14. CIPRO [Suspect]
     Active Substance: CIPROFLOXACIN HYDROCHLORIDE
     Indication: URINARY TRACT INFECTION
     Dosage: 500 MG, UNK
     Dates: start: 20130924, end: 20131004
  15. CIPRO [Suspect]
     Active Substance: CIPROFLOXACIN HYDROCHLORIDE
     Indication: URINARY TRACT INFECTION
     Dosage: 500 MG, UNK
     Dates: start: 20120104, end: 20120118
  16. CIPROFLOXACIN. [Suspect]
     Active Substance: CIPROFLOXACIN
     Dosage: UNK
     Dates: start: 2012
  17. ZONEGRAN [Concomitant]
     Active Substance: ZONISAMIDE
     Indication: APPETITE DISORDER
  18. NITROSTAT [Concomitant]
     Active Substance: NITROGLYCERIN
     Indication: MYOCARDIAL INFARCTION
     Dosage: 4 MG, QD
     Dates: start: 2006
  19. MACROBID [Concomitant]
     Active Substance: NITROFURANTOIN\NITROFURANTOIN MONOHYDRATE
     Dosage: UNK
     Dates: start: 201601
  20. LEVAQUIN [Suspect]
     Active Substance: LEVOFLOXACIN
     Indication: INFECTION
     Dosage: 500 MG, UNK
     Dates: start: 20101110, end: 20101117

REACTIONS (12)
  - Neuralgia [None]
  - Abdominal pain upper [None]
  - Nerve injury [Not Recovered/Not Resolved]
  - Pain [None]
  - Neuritis [None]
  - Emotional distress [None]
  - Gait disturbance [None]
  - Neuropathy peripheral [Not Recovered/Not Resolved]
  - Injury [None]
  - Nerve injury [None]
  - Pain in extremity [None]
  - Neuropathy peripheral [None]

NARRATIVE: CASE EVENT DATE: 2012
